FAERS Safety Report 9980982 (Version 2)
Quarter: 2014Q1

REPORT INFORMATION
  Report Type: Spontaneous
  Country: US (occurrence: US)
  Receive Date: 20140307
  Receipt Date: 20140307
  Transmission Date: 20141002
  Serious: No
  Sender: FDA-Public Use
  Company Number: US-PFIZER INC-2014028308

PATIENT
  Age: 61 Year
  Sex: Female
  Weight: 103 kg

DRUGS (1)
  1. CHANTIX [Suspect]
     Indication: BRONCHITIS
     Dosage: UNK

REACTIONS (2)
  - Intentional drug misuse [Unknown]
  - Swelling [Unknown]
